FAERS Safety Report 13834340 (Version 5)
Quarter: 2018Q3

REPORT INFORMATION
  Report Type: Spontaneous
  Country: US (occurrence: US)
  Receive Date: 20170804
  Receipt Date: 20180905
  Transmission Date: 20181010
  Serious: Yes (Other)
  Sender: FDA-Public Use
  Company Number: US-PFIZER INC-2017332784

PATIENT
  Age: 60 Year
  Sex: Female
  Weight: 54 kg

DRUGS (5)
  1. FASLODEX [Concomitant]
     Active Substance: FULVESTRANT
     Dosage: UNK, MONTHLY (INJECTION ONCE A MONTH)
     Dates: start: 201701
  2. IBRANCE [Suspect]
     Active Substance: PALBOCICLIB
     Indication: BREAST CANCER METASTATIC
     Dosage: 125 MG, CYCLIC (DAILY FOR 21 DAYS ON AND 7 DAYS OFF)
     Route: 048
     Dates: start: 201701, end: 201806
  3. FASLODEX [Concomitant]
     Active Substance: FULVESTRANT
     Indication: DRUG THERAPY
     Dosage: UNK (INJECTION EVERY TWO WEEKS)
  4. BUPROPION. [Concomitant]
     Active Substance: BUPROPION
     Indication: HOT FLUSH
     Dosage: UNK
     Dates: start: 201701
  5. XGEVA [Concomitant]
     Active Substance: DENOSUMAB
     Indication: DRUG THERAPY
     Dosage: UNK, MONTHLY (INJECTION ONCE A MONTH)
     Dates: start: 201701

REACTIONS (13)
  - Thyroid cancer [Unknown]
  - Diarrhoea [Not Recovered/Not Resolved]
  - Gastric cancer [Unknown]
  - Lethargy [Not Recovered/Not Resolved]
  - Bone pain [Not Recovered/Not Resolved]
  - Condition aggravated [Not Recovered/Not Resolved]
  - Weight increased [Recovered/Resolved]
  - Nausea [Recovered/Resolved]
  - Pain [Unknown]
  - Melaena [Unknown]
  - Metabolic disorder [Not Recovered/Not Resolved]
  - Influenza [Unknown]
  - Second primary malignancy [Unknown]

NARRATIVE: CASE EVENT DATE: 2017
